FAERS Safety Report 9203213 (Version 2)
Quarter: 2013Q2

REPORT INFORMATION
  Report Type: Spontaneous
  Country: FR (occurrence: None)
  Receive Date: 20130328
  Receipt Date: 20130509
  Transmission Date: 20140414
  Serious: Yes (Hospitalization)
  Sender: FDA-Public Use
  Company Number: FR-011234

PATIENT
  Age: 59 Year
  Sex: Female

DRUGS (1)
  1. PICOPREP [Suspect]
     Indication: BOWEL PREPARATION
     Dosage: 2 DF, 2 SACHETS ORAL
     Route: 048
     Dates: start: 201303, end: 201303

REACTIONS (5)
  - Pain [None]
  - Malaise [None]
  - Nausea [None]
  - Colitis erosive [None]
  - Enterocolitis viral [None]
